FAERS Safety Report 23665292 (Version 1)
Quarter: 2024Q1

REPORT INFORMATION
  Report Type: Spontaneous
  Country: RU (occurrence: RU)
  Receive Date: 20240322
  Receipt Date: 20240322
  Transmission Date: 20240410
  Serious: Yes (Other)
  Sender: FDA-Public Use
  Company Number: RU-Harrow Eye-2154709

PATIENT
  Sex: Female

DRUGS (2)
  1. NEVANAC [Suspect]
     Active Substance: NEPAFENAC
     Indication: Product used for unknown indication
     Route: 047
     Dates: start: 20240114
  2. CAPOTEN [Concomitant]
     Active Substance: CAPTOPRIL

REACTIONS (9)
  - Blindness [Unknown]
  - Off label use [Unknown]
  - Hypersensitivity [Unknown]
  - Hypertension [Unknown]
  - Lacrimation increased [Not Recovered/Not Resolved]
  - Blood pressure abnormal [Recovering/Resolving]
  - Cardiac disorder [Unknown]
  - Eye pain [Unknown]
  - Headache [Unknown]

NARRATIVE: CASE EVENT DATE: 20240114
